FAERS Safety Report 15267022 (Version 1)
Quarter: 2018Q3

REPORT INFORMATION
  Report Type: Spontaneous
  Country: DE (occurrence: DE)
  Receive Date: 20180810
  Receipt Date: 20180810
  Transmission Date: 20181010
  Serious: Yes (Other)
  Sender: FDA-Public Use
  Company Number: DE-BAUSCH-BL-2018-021186

PATIENT
  Age: 1 Day
  Sex: Male
  Weight: 3.08 kg

DRUGS (9)
  1. METHYLDOPA. [Concomitant]
     Active Substance: METHYLDOPA
     Dosage: DOSAGE INCREASE TO 3 X 250 MG/D
     Route: 064
     Dates: start: 2017, end: 20171021
  2. CLOTRIMAZOLE. [Concomitant]
     Active Substance: CLOTRIMAZOLE
     Indication: VULVOVAGINAL MYCOTIC INFECTION
     Route: 064
  3. PREDNISOLON [Suspect]
     Active Substance: PREDNISOLONE
     Dosage: GESTATIONAL WEEK 28 PLUS 3: DOSAGE INCREASE FROM 7.5 MG/D TO 20 MG/D.
     Route: 064
     Dates: start: 2017, end: 2017
  4. AMITRIPTYLIN [Concomitant]
     Active Substance: AMITRIPTYLINE
     Indication: RESTLESS LEGS SYNDROME
     Dosage: 25 (MG/D)
     Route: 064
     Dates: start: 20170210, end: 20170327
  5. CIMZIA [Concomitant]
     Active Substance: CERTOLIZUMAB PEGOL
     Indication: RHEUMATOID ARTHRITIS
     Dosage: 200 (MG/D) TWO WEEKS
     Route: 064
  6. METHYLDOPA. [Concomitant]
     Active Substance: METHYLDOPA
     Indication: PRE-ECLAMPSIA
     Dosage: 750 (MG/D)/ STARTED WITH 250MG/D
     Route: 064
     Dates: start: 20171009, end: 2017
  7. PREDNISOLON [Suspect]
     Active Substance: PREDNISOLONE
     Indication: RHEUMATOID ARTHRITIS
     Dosage: GESTATIONAL WEEK 28 PLUS 3: DOSAGE INCREASE FROM 7.5 MG/D TO 20 MG/D.
     Route: 064
     Dates: start: 20170210, end: 2017
  8. PREDNISOLON [Suspect]
     Active Substance: PREDNISOLONE
     Dosage: LATER DECREASE AGAIN. AT DELIVERY 12
     Route: 064
     Dates: start: 2017, end: 20171021
  9. MAMA A?Z [Concomitant]
     Indication: PROPHYLAXIS OF NEURAL TUBE DEFECT
     Dosage: 0.4 (MG/D)
     Route: 064
     Dates: start: 20170210, end: 20171021

REACTIONS (1)
  - Hypoglycaemia neonatal [Recovered/Resolved]

NARRATIVE: CASE EVENT DATE: 20171021
